FAERS Safety Report 4858568-7 (Version None)
Quarter: 2005Q4

REPORT INFORMATION
  Report Type: 
  Country: None (occurrence: None)
  Receive Date: 20051219
  Receipt Date: 20051004
  Transmission Date: 20060501
  Serious: No
  Sender: FDA-Public Use
  Company Number: US-GLAXOSMITHKLINE-A0576901A

PATIENT
  Age: 55 Year
  Sex: Female

DRUGS (1)
  1. EQUATE NTS 21MG [Suspect]
     Dates: start: 20051003

REACTIONS (1)
  - LOCAL SWELLING [None]
